FAERS Safety Report 24345418 (Version 1)
Quarter: 2024Q3

REPORT INFORMATION
  Report Type: Spontaneous
  Country: US (occurrence: None)
  Receive Date: 20240920
  Receipt Date: 20240920
  Transmission Date: 20241016
  Serious: Yes (Other)
  Sender: Public
  Company Number: None

PATIENT
  Age: 35 Year
  Sex: Male
  Weight: 130.5 kg

DRUGS (6)
  1. PAROXETINE [Suspect]
     Active Substance: PAROXETINE
     Indication: Schizophrenia
     Dosage: FREQUENCY : AT BEDTIME;?
     Route: 048
  2. PAROXETINE [Suspect]
     Active Substance: PAROXETINE
     Indication: Schizophrenia
     Dosage: FREQUENCY : AT BEDTIME;?
     Route: 048
  3. CHOLECALCIFEROL [Concomitant]
     Active Substance: CHOLECALCIFEROL
  4. DOCUSATE [Concomitant]
     Active Substance: DOCUSATE
  5. MELATONIN [Concomitant]
     Active Substance: MELATONIN
  6. CLOZAPINE [Concomitant]

REACTIONS (3)
  - Therapy cessation [None]
  - Electrocardiogram QT prolonged [None]
  - Drug interaction [None]

NARRATIVE: CASE EVENT DATE: 20240705
